FAERS Safety Report 4650451-5 (Version None)
Quarter: 2005Q2

REPORT INFORMATION
  Report Type: 
  Country: None (occurrence: None)
  Receive Date: 20050429
  Receipt Date: 20050418
  Transmission Date: 20051028
  Serious: Yes (Other)
  Sender: FDA-Public Use
  Company Number: 2004067513

PATIENT
  Age: 27 Year
  Sex: Female

DRUGS (9)
  1. ATARAX [Suspect]
     Indication: DERMATITIS ATOPIC
     Dosage: 10 MG (10 MG, 1 IN 1 D), ORAL
     Route: 048
     Dates: start: 20040326, end: 20040820
  2. OLOPATADINE HYDROCHLORIDE [Suspect]
     Indication: DERMATITIS ATOPIC
     Dosage: 5 MG (1 D), ORAL
     Route: 048
     Dates: start: 20040423, end: 20040820
  3. PREDNISOLONE VALEROACETATE  (PREDNISOLONE VALEROACETATE) [Concomitant]
  4. HYDROCORTISONE BUTYRATE (HYDROCORTISONE BUTYRATE) [Concomitant]
  5. BECLOMETASON DIPROPIONATE (BECLOMETASONE DIPROPIONATE) [Concomitant]
  6. CARBAZOCHROME SODIUM SULFONATE (CARBAZOCHROME SODIUM SULFONATE) [Concomitant]
  7. PIPERIDOLATE HYDROCHLORIDE (PIPERIDOLATE HYDROCHLORIDE) [Concomitant]
  8. DEXTROMETHORPHAN HYDROBROMIDE (DEXTROMETHORPHAN HYDROBROMIDE) [Concomitant]
  9. KAKKON-TO (HERBAL EXTRACT NOS) [Concomitant]

REACTIONS (6)
  - CAESAREAN SECTION [None]
  - DRUG EXPOSURE DURING PREGNANCY [None]
  - FEAR [None]
  - NASOPHARYNGITIS [None]
  - PRE-ECLAMPSIA [None]
  - PREGNANCY [None]
